FAERS Safety Report 7144653-6 (Version None)
Quarter: 2010Q4

REPORT INFORMATION
  Report Type: 
  Country: None (occurrence: None)
  Receive Date: 20101208
  Receipt Date: 20101122
  Transmission Date: 20110411
  Serious: Yes (Other)
  Sender: FDA-Public Use
  Company Number: FI-BAYER-2010-000038

PATIENT

DRUGS (3)
  1. MIRENA [Suspect]
     Indication: CONTRACEPTION
     Dosage: DAILY DOSE 20 MCG/24HR
     Route: 015
     Dates: start: 20010101, end: 20060101
  2. MIRENA [Suspect]
     Dosage: DAILY DOSE 20 MCG/24HR
     Route: 015
     Dates: start: 20060101, end: 20100526
  3. MIRENA [Suspect]
     Dosage: DAILY DOSE 20 MCG/24HR
     Route: 015
     Dates: start: 20100526, end: 20101122

REACTIONS (1)
  - BREAST CANCER FEMALE [None]
